FAERS Safety Report 10562301 (Version 1)
Quarter: 2014Q4

REPORT INFORMATION
  Report Type: Spontaneous
  Country: US (occurrence: None)
  Receive Date: 20141031
  Receipt Date: 20141031
  Transmission Date: 20150529
  Serious: Yes (Other)
  Sender: FDA-Public Use
  Company Number: IMP_07996_2014

PATIENT
  Age: 57 Year
  Sex: Male

DRUGS (1)
  1. SOTALOL. [Suspect]
     Active Substance: SOTALOL
     Indication: ATRIAL FIBRILLATION
     Route: 048

REACTIONS (5)
  - Vestibular disorder [None]
  - Electrocardiogram QT prolonged [None]
  - Balance disorder [None]
  - Dizziness [None]
  - Vestibular nystagmus [None]
